FAERS Safety Report 7988721 (Version 2)
Quarter: 2012Q4

REPORT INFORMATION
  Report Type: 
  Country: CA (occurrence: CA)
  Receive Date: 20110613
  Receipt Date: 20121109
  Transmission Date: 20130627
  Serious: Yes (Hospitalization, Other)
  Sender: FDA-Public Use
  Company Number: PHMT2006CA00907

PATIENT
  Sex: Male

DRUGS (13)
  1. SANDOSTATIN LAR [Suspect]
     Indication: METASTATIC CARCINOID TUMOUR
     Dosage: 20 mg every 4 weeks
     Dates: start: 20051222, end: 20060220
  2. ALTACE [Concomitant]
  3. APO-LOPERAMIDE [Concomitant]
  4. AREDIA [Concomitant]
  5. ASAPHEN [Concomitant]
  6. ATIVAN [Concomitant]
  7. LIPITOR [Concomitant]
  8. MAGNESIUM [Concomitant]
  9. NORVASC [Concomitant]
  10. NOVO-GESIC [Concomitant]
  11. NOVOSPIROTON [Concomitant]
  12. NOVOSEMIDE [Concomitant]
  13. BISOPROLOL [Concomitant]

REACTIONS (8)
  - Hypercalcaemia [Unknown]
  - General physical health deterioration [Unknown]
  - Malignant neoplasm progression [Unknown]
  - Asthenia [Unknown]
  - Hyperglycaemia [Unknown]
  - Tachycardia [Unknown]
  - Headache [Unknown]
  - Diarrhoea [Unknown]
